FAERS Safety Report 25722355 (Version 1)
Quarter: 2025Q3

REPORT INFORMATION
  Report Type: Report from Study
  Country: US (occurrence: US)
  Receive Date: 20250825
  Receipt Date: 20250825
  Transmission Date: 20251020
  Serious: Yes (Other)
  Sender: ELI LILLY AND COMPANY
  Company Number: US-ELI_LILLY_AND_COMPANY-US201312008675

PATIENT
  Age: 57 Year
  Sex: Female

DRUGS (9)
  1. FORTEO [Suspect]
     Active Substance: TERIPARATIDE
     Indication: Osteoporosis
     Dosage: 20 UG, QD
     Route: 065
     Dates: start: 20131115, end: 201401
  2. FORTEO [Suspect]
     Active Substance: TERIPARATIDE
     Indication: Bone density decreased
     Dosage: 20 UG, QD
     Route: 065
  3. FORTEO [Suspect]
     Active Substance: TERIPARATIDE
     Indication: Ankle fracture
  4. TOPIRAMATE [Suspect]
     Active Substance: TOPIRAMATE
     Indication: Pain
     Route: 065
  5. TOPIRAMATE [Suspect]
     Active Substance: TOPIRAMATE
     Indication: Hunger
  6. CALCIUM [Concomitant]
     Active Substance: CALCIUM
     Route: 065
  7. TYLENOL ARTHRITIS PAIN [Concomitant]
     Active Substance: ACETAMINOPHEN
     Dosage: UNK, QD
     Route: 065
  8. BENADRYL [Concomitant]
     Active Substance: DIPHENHYDRAMINE HYDROCHLORIDE
  9. MAGNESIUM [Concomitant]
     Active Substance: MAGNESIUM
     Indication: Product used for unknown indication
     Route: 065

REACTIONS (20)
  - Cardiac disorder [Unknown]
  - Blood calcium increased [Unknown]
  - Bone pain [Unknown]
  - Creatinine urine increased [Unknown]
  - Calcium deficiency [Unknown]
  - Arthritis [Unknown]
  - Back pain [Not Recovered/Not Resolved]
  - Pain in extremity [Not Recovered/Not Resolved]
  - Pain in jaw [Unknown]
  - Myalgia [Unknown]
  - Tremor [Unknown]
  - Contusion [Unknown]
  - Influenza like illness [Unknown]
  - Feeling abnormal [Unknown]
  - Headache [Unknown]
  - Pain [Unknown]
  - Arthralgia [Unknown]
  - Insomnia [Unknown]
  - Anxiety [Unknown]
  - Urine calcium increased [Unknown]

NARRATIVE: CASE EVENT DATE: 20130101
